FAERS Safety Report 5145654-X (Version None)
Quarter: 2006Q4

REPORT INFORMATION
  Report Type: 
  Country: None (occurrence: None)
  Receive Date: 20061102
  Receipt Date: 20061020
  Transmission Date: 20070319
  Serious: Yes (Hospitalization)
  Sender: FDA-Public Use
  Company Number: T200600879

PATIENT
  Age: 29 Year
  Sex: Female

DRUGS (1)
  1. OPTIJECT 300 (IOVERSOL) INJECTION [Suspect]
     Indication: COMPUTERISED TOMOGRAM
     Dosage: 100 ML, SINGLE, INTRAVENOUS
     Route: 042
     Dates: start: 20060712, end: 20060712

REACTIONS (3)
  - COUGH [None]
  - HYPERSENSITIVITY [None]
  - HYPOTENSION [None]
